FAERS Safety Report 7215232-7 (Version None)
Quarter: 2011Q1

REPORT INFORMATION
  Report Type: 
  Country: None (occurrence: None)
  Receive Date: 20110107
  Receipt Date: 20101227
  Transmission Date: 20110831
  Serious: Yes (Hospitalization, Other)
  Sender: FDA-Public Use
  Company Number: PHHY2010CH88268

PATIENT
  Sex: Female

DRUGS (6)
  1. ANTRA [Suspect]
     Dosage: UNK
  2. SANDIMMUNE [Suspect]
     Indication: LUNG TRANSPLANT
     Dosage: UNK
     Dates: start: 19960801
  3. AUGMENTIN '125' [Suspect]
     Dosage: 2000 MG
     Route: 042
     Dates: start: 19970201, end: 19970401
  4. CIPROXIN [Concomitant]
  5. BACTRIM [Concomitant]
     Dosage: UNK
  6. SPORANOX [Concomitant]
     Dosage: UNK

REACTIONS (3)
  - BRONCHITIS [None]
  - HEPATITIS CHOLESTATIC [None]
  - CHOLESTATIC LIVER INJURY [None]
